FAERS Safety Report 4777513-6 (Version None)
Quarter: 2005Q3

REPORT INFORMATION
  Report Type: 
  Country: None (occurrence: None)
  Receive Date: 20050915
  Receipt Date: 20050901
  Transmission Date: 20060218
  Serious: Yes (Disabling)
  Sender: FDA-Public Use
  Company Number: 32430

PATIENT

DRUGS (1)
  1. BSS PLUS [Suspect]
     Indication: SURGERY

REACTIONS (2)
  - CORNEAL OEDEMA [None]
  - POST PROCEDURAL COMPLICATION [None]
